FAERS Safety Report 16833128 (Version 1)
Quarter: 2019Q3

REPORT INFORMATION
  Report Type: Report from Study
  Country: US (occurrence: US)
  Receive Date: 20190920
  Receipt Date: 20190920
  Transmission Date: 20191005
  Serious: Yes (Death)
  Sender: FDA-Public Use
  Company Number: US-TAIHO ONCOLOGY  INC-EU-2019-03096

PATIENT
  Sex: Male

DRUGS (12)
  1. LONSURF [Suspect]
     Active Substance: TIPIRACIL HYDROCHLORIDE\TRIFLURIDINE
     Indication: GASTRIC CANCER
     Dosage: CURRENT CYCLE NOT REPORTED. DAYS 1-5 AND 8-12.
     Route: 048
  2. ONDANSETRON [Concomitant]
     Active Substance: ONDANSETRON
     Dosage: NI
  3. WARFARIN [Concomitant]
     Active Substance: WARFARIN
     Dosage: NI
  4. METOCLOPRAM [Concomitant]
     Active Substance: METOCLOPRAMIDE
     Dosage: NI
  5. OMEPRAZOLE. [Concomitant]
     Active Substance: OMEPRAZOLE
     Dosage: NI
  6. LEVOTHYROXIN [Concomitant]
     Active Substance: LEVOTHYROXINE
     Dosage: NI
  7. OLANZAPINE. [Concomitant]
     Active Substance: OLANZAPINE
     Dosage: NI
  8. DULOXETINE. [Concomitant]
     Active Substance: DULOXETINE
     Dosage: NI
  9. ZOLPIDEM [Concomitant]
     Active Substance: ZOLPIDEM TARTRATE
     Dosage: NI
  10. ATORVASTATIN [Concomitant]
     Active Substance: ATORVASTATIN
     Dosage: NI
  11. CARVEDILOL. [Concomitant]
     Active Substance: CARVEDILOL
     Dosage: NI
  12. PIOGLITAZONE. [Concomitant]
     Active Substance: PIOGLITAZONE
     Dosage: NI

REACTIONS (1)
  - Death [Fatal]

NARRATIVE: CASE EVENT DATE: 2019
